FAERS Safety Report 20059723 (Version 1)
Quarter: 2021Q4

REPORT INFORMATION
  Report Type: Spontaneous
  Country: CN (occurrence: CN)
  Receive Date: 20211111
  Receipt Date: 20211111
  Transmission Date: 20220304
  Serious: Yes (Hospitalization)
  Sender: FDA-Public Use
  Company Number: CN-SCALL-2021-CN-000362

PATIENT
  Age: 35 Year
  Sex: Female
  Weight: 53 kg

DRUGS (4)
  1. RABEPRAZOLE SODIUM [Suspect]
     Active Substance: RABEPRAZOLE SODIUM
     Indication: Helicobacter infection
     Dosage: 10 MG,12 HR
     Route: 048
     Dates: start: 20210926, end: 20211004
  2. CLARITHROMYCIN [Suspect]
     Active Substance: CLARITHROMYCIN
     Route: 048
     Dates: start: 20210926, end: 20211004
  3. TINIDAZOLE [Suspect]
     Active Substance: TINIDAZOLE
     Dosage: 12 HR
     Route: 048
     Dates: start: 20210926, end: 20211002
  4. BISMUTH SUBCITRATE [Suspect]
     Active Substance: BISMUTH SUBCITRATE
     Dosage: 2 DOSAGE FORMS,12 HR
     Route: 048
     Dates: start: 20210926, end: 20211004

REACTIONS (2)
  - Pyrexia [Recovered/Resolved]
  - Rash pruritic [Recovering/Resolving]

NARRATIVE: CASE EVENT DATE: 20211003
